FAERS Safety Report 24216696 (Version 1)
Quarter: 2024Q3

REPORT INFORMATION
  Report Type: Report from Study
  Country: IN (occurrence: IN)
  Receive Date: 20240816
  Receipt Date: 20240816
  Transmission Date: 20241017
  Serious: Yes (Death)
  Sender: ROCHE
  Company Number: IN-ROCHE-10000054771

PATIENT
  Age: 36 Year
  Sex: Male

DRUGS (1)
  1. POLIVY [Suspect]
     Active Substance: POLATUZUMAB VEDOTIN-PIIQ
     Indication: High grade B-cell lymphoma refractory
     Route: 042
     Dates: start: 20240805

REACTIONS (4)
  - Thalassaemia [Fatal]
  - Platelet count decreased [Fatal]
  - Lung disorder [Fatal]
  - Neoplasm malignant [Fatal]

NARRATIVE: CASE EVENT DATE: 20240806
